FAERS Safety Report 10736875 (Version 1)
Quarter: 2015Q1

REPORT INFORMATION
  Report Type: Spontaneous
  Country: US (occurrence: US)
  Receive Date: 20150126
  Receipt Date: 20150126
  Transmission Date: 20150721
  Serious: Yes (Hospitalization, Other)
  Sender: FDA-Public Use
  Company Number: US-GLAXOSMITHKLINE-US2014GSK033222

PATIENT
  Age: 62 Year
  Sex: Female

DRUGS (1)
  1. LAMICTAL [Suspect]
     Active Substance: LAMOTRIGINE
     Indication: COMPLEX PARTIAL SEIZURES
     Dosage: 25 MG, UNK
     Route: 048

REACTIONS (2)
  - Mastectomy [Unknown]
  - Breast cancer [Unknown]

NARRATIVE: CASE EVENT DATE: 20141204
